FAERS Safety Report 8579662-3 (Version None)
Quarter: 2012Q3

REPORT INFORMATION
  Report Type: 
  Country: None (occurrence: None)
  Receive Date: 20120808
  Receipt Date: 20120807
  Transmission Date: 20120928
  Serious: Yes (Life-Threatening)
  Sender: FDA-Public Use
  Company Number: GB-ABBOTT-12P-167-0965759-00

PATIENT
  Age: 8 Year
  Sex: Female

DRUGS (1)
  1. VALPROATE SODIUM [Suspect]
     Indication: PETIT MAL EPILEPSY
     Dates: start: 20111101, end: 20120726

REACTIONS (6)
  - VOMITING [None]
  - PANCREATITIS ACUTE [None]
  - SEPSIS [None]
  - NECROSIS [None]
  - ACUTE ABDOMEN [None]
  - RENAL FAILURE ACUTE [None]
